FAERS Safety Report 22051868 (Version 1)
Quarter: 2023Q1

REPORT INFORMATION
  Report Type: Spontaneous
  Country: JP (occurrence: JP)
  Receive Date: 20230302
  Receipt Date: 20230302
  Transmission Date: 20230417
  Serious: Yes (Other)
  Sender: FDA-Public Use
  Company Number: JP-DSJP-DSJ-2023-107554

PATIENT

DRUGS (2)
  1. DENOSUMAB [Suspect]
     Active Substance: DENOSUMAB
     Indication: Osteoporosis
     Dosage: 60 MILLIGRAM, AROUND AUGUST TO SEPTEMBER 2022
     Route: 065
     Dates: start: 2022
  2. VITAMIN D NOS [Concomitant]
     Active Substance: VITAMIN D NOS
     Dosage: UNK
     Route: 048
     Dates: start: 2022

REACTIONS (2)
  - Nephrolithiasis [Recovered/Resolved]
  - Vascular wall discolouration [Recovered/Resolved]

NARRATIVE: CASE EVENT DATE: 20220101
